FAERS Safety Report 16699519 (Version 3)
Quarter: 2019Q3

REPORT INFORMATION
  Report Type: Spontaneous
  Country: US (occurrence: US)
  Receive Date: 20190813
  Receipt Date: 20190820
  Transmission Date: 20191004
  Serious: Yes (Other)
  Sender: FDA-Public Use
  Company Number: US-PFIZER INC-2019211729

PATIENT
  Age: 58 Year
  Sex: Female

DRUGS (1)
  1. PREMARIN [Suspect]
     Active Substance: ESTROGENS, CONJUGATED
     Dosage: UNK, (APPLY 3 TIMES A WEEK) (0.625)

REACTIONS (6)
  - Infection [Unknown]
  - Malaise [Unknown]
  - Anxiety [Unknown]
  - Urinary tract infection [Unknown]
  - Pyrexia [Unknown]
  - Off label use [Unknown]
